FAERS Safety Report 24162935 (Version 1)
Quarter: 2024Q3

REPORT INFORMATION
  Report Type: Spontaneous
  Country: FR (occurrence: FR)
  Receive Date: 20240801
  Receipt Date: 20240801
  Transmission Date: 20241016
  Serious: Yes (Hospitalization, Other)
  Sender: PFIZER
  Company Number: None

PATIENT
  Age: 59 Year
  Sex: Male

DRUGS (8)
  1. MEROPENEM [Suspect]
     Active Substance: MEROPENEM
     Indication: Lung disorder
     Dosage: 1 DF, 1X/DAY
     Route: 042
     Dates: start: 20240129, end: 20240131
  2. SPIRAMYCIN [Suspect]
     Active Substance: SPIRAMYCIN
     Indication: Lung disorder
     Dosage: 1 DF, 1X/DAY
     Route: 042
     Dates: start: 20240129, end: 20240201
  3. CEFEPIME [Suspect]
     Active Substance: CEFEPIME HYDROCHLORIDE
     Indication: Lung disorder
     Dosage: 1 DF, 1X/DAY
     Route: 042
     Dates: start: 20240131, end: 20240201
  4. CEFTRIAXONE SODIUM [Suspect]
     Active Substance: CEFTRIAXONE SODIUM
     Indication: Lung disorder
     Dosage: 1 DF, 1X/DAY
     Route: 042
     Dates: start: 20240201, end: 20240204
  5. ALPRAZOLAM [Concomitant]
     Active Substance: ALPRAZOLAM
     Dosage: UNK
  6. VALPROATE SODIUM [Concomitant]
     Active Substance: VALPROATE SODIUM
     Dosage: UNK
  7. CLOBAZAM [Concomitant]
     Active Substance: CLOBAZAM
     Dosage: UNK
  8. MIRTAZAPINE [Concomitant]
     Active Substance: MIRTAZAPINE
     Dosage: UNK

REACTIONS (2)
  - Acute kidney injury [Recovered/Resolved]
  - Nephrolithiasis [Recovered/Resolved]

NARRATIVE: CASE EVENT DATE: 20240201
